FAERS Safety Report 9090702 (Version 1)
Quarter: 2013Q1

REPORT INFORMATION
  Report Type: Spontaneous
  Country: US (occurrence: US)
  Receive Date: 20130201
  Receipt Date: 20130201
  Transmission Date: 20140127
  Serious: No
  Sender: FDA-Public Use
  Company Number: US-ABBOTT-12P-163-1018410-00

PATIENT
  Sex: Female
  Weight: 44 kg

DRUGS (1)
  1. HUMIRA [Suspect]
     Indication: CROHN^S DISEASE
     Dosage: STARTED WITH 160MG
     Dates: start: 201210

REACTIONS (6)
  - Acne [Not Recovered/Not Resolved]
  - Eye swelling [Unknown]
  - Nasal oedema [Unknown]
  - Local swelling [Unknown]
  - Injection site erythema [Unknown]
  - Abdominal distension [Unknown]
